FAERS Safety Report 8834598 (Version 2)
Quarter: 2013Q3

REPORT INFORMATION
  Report Type: Report from Study
  Country: BR (occurrence: BR)
  Receive Date: 20121010
  Receipt Date: 20130815
  Transmission Date: 20140515
  Serious: Yes (Hospitalization, Other)
  Sender: FDA-Public Use
  Company Number: BR-BAYER-2012-105852

PATIENT
  Age: 27 Year
  Sex: Female

DRUGS (2)
  1. BETAFERON [Suspect]
     Indication: MULTIPLE SCLEROSIS
     Dosage: UNK
     Route: 058
     Dates: start: 2003
  2. CARBAMAZEPINE [Interacting]
     Indication: CONVULSION
     Dosage: 1 DF, QD
     Route: 048
     Dates: start: 201204

REACTIONS (16)
  - Convulsion [Not Recovered/Not Resolved]
  - Influenza like illness [Not Recovered/Not Resolved]
  - Lymphadenitis [Unknown]
  - Poisoning [Recovered/Resolved]
  - Urticaria [Recovered/Resolved]
  - Pruritus generalised [Recovered/Resolved]
  - Hypersensitivity [Unknown]
  - Bone pain [Not Recovered/Not Resolved]
  - Arthritis [Not Recovered/Not Resolved]
  - Tonsillar inflammation [Recovered/Resolved]
  - Pyrexia [Recovered/Resolved]
  - Pharyngeal inflammation [None]
  - Pyrexia [None]
  - Pharyngeal inflammation [None]
  - Dysphonia [None]
  - Pyrexia [None]
